FAERS Safety Report 7826119-0 (Version None)
Quarter: 2011Q4

REPORT INFORMATION
  Report Type: 
  Country: None (occurrence: None)
  Receive Date: 20111019
  Receipt Date: 20111010
  Transmission Date: 20120403
  Serious: No
  Sender: FDA-Public Use
  Company Number: US-ASTRAZENECA-2011SE53928

PATIENT
  Age: 72 Year
  Sex: Male
  Weight: 90.7 kg

DRUGS (3)
  1. NEXIUM [Suspect]
     Route: 048
  2. CRESTOR [Suspect]
     Route: 048
  3. PLAVIX [Concomitant]

REACTIONS (1)
  - CATARACT [None]
